FAERS Safety Report 5403562-0 (Version None)
Quarter: 2007Q3

REPORT INFORMATION
  Report Type: 
  Country: None (occurrence: None)
  Receive Date: 20070730
  Receipt Date: 20070720
  Transmission Date: 20080115
  Serious: Yes (Other)
  Sender: FDA-Public Use
  Company Number: SPV1-2007-03649

PATIENT
  Age: 52 Year
  Sex: Female

DRUGS (2)
  1. FOSRENOL [Suspect]
     Indication: HYPERPHOSPHATAEMIA
     Dosage: 1500 MG
     Dates: start: 20070201, end: 20070704
  2. FOSRENOL [Suspect]
     Indication: RENAL FAILURE
     Dosage: 1500 MG
     Dates: start: 20070201, end: 20070704

REACTIONS (1)
  - NEPHROGENIC SYSTEMIC FIBROSIS [None]
